FAERS Safety Report 7338092-2 (Version None)
Quarter: 2011Q1

REPORT INFORMATION
  Report Type: 
  Country: None (occurrence: None)
  Receive Date: 20110308
  Receipt Date: 20110228
  Transmission Date: 20110831
  Serious: Yes (Other)
  Sender: FDA-Public Use
  Company Number: PHHY2011US04475

PATIENT
  Sex: Female

DRUGS (1)
  1. GILENYA [Suspect]
     Indication: RELAPSING-REMITTING MULTIPLE SCLEROSIS
     Dosage: 0.5 MG, QD
     Route: 048
     Dates: start: 20110114

REACTIONS (7)
  - ASTHENIA [None]
  - NASOPHARYNGITIS [None]
  - NIGHTMARE [None]
  - FATIGUE [None]
  - NIGHT SWEATS [None]
  - PARAESTHESIA [None]
  - BLOOD PRESSURE DECREASED [None]
